FAERS Safety Report 7197763-1 (Version None)
Quarter: 2010Q4

REPORT INFORMATION
  Report Type: 
  Country: None (occurrence: None)
  Receive Date: 20101227
  Receipt Date: 20101215
  Transmission Date: 20110411
  Serious: Yes (Hospitalization, Other)
  Sender: FDA-Public Use
  Company Number: CN-SANOFI-AVENTIS-2010SA074897

PATIENT
  Sex: Male
  Weight: 69 kg

DRUGS (11)
  1. PLAVIX [Suspect]
     Route: 048
     Dates: start: 20090919
  2. PLAVIX [Suspect]
     Indication: THROMBOSIS PROPHYLAXIS
     Route: 048
     Dates: start: 20090919
  3. PLAVIX [Suspect]
     Route: 048
     Dates: start: 20090919
  4. ASPIRIN [Concomitant]
     Indication: THROMBOSIS PROPHYLAXIS
     Dosage: DOSE:1 UNIT(S)
     Route: 048
     Dates: start: 20090919
  5. BETALOC [Concomitant]
     Indication: ARRHYTHMIA
     Dosage: DOSE:1 UNIT(S)
     Route: 048
  6. ATORVASTATIN CALCIUM [Concomitant]
     Route: 048
  7. LOTENSIN [Concomitant]
     Dosage: DOSE:0.5 UNIT(S)
     Route: 048
  8. RANITIDINE [Concomitant]
     Route: 048
  9. ISOSORBIDE MONONITRATE [Concomitant]
     Indication: MYOCARDIAL ISCHAEMIA
     Route: 048
  10. TRIMETAZIDINE DIHYDROCHLORIDE [Concomitant]
     Route: 048
  11. GLUCOBAY [Concomitant]
     Route: 048

REACTIONS (12)
  - ARTERIOSCLEROSIS [None]
  - ARTERIOSCLEROSIS CORONARY ARTERY [None]
  - BLOOD GLUCOSE DECREASED [None]
  - CARDIOMEGALY [None]
  - CHEST DISCOMFORT [None]
  - CHEST PAIN [None]
  - CORONARY ARTERY OCCLUSION [None]
  - DIZZINESS [None]
  - DRUG INEFFECTIVE [None]
  - DYSPNOEA [None]
  - FATIGUE [None]
  - OFF LABEL USE [None]
